FAERS Safety Report 6791568-9 (Version None)
Quarter: 2010Q2

REPORT INFORMATION
  Report Type: 
  Country: None (occurrence: None)
  Receive Date: 20100624
  Receipt Date: 20090416
  Transmission Date: 20101027
  Serious: Yes (Other)
  Sender: FDA-Public Use
  Company Number: US-PFIZER INC-2008058427

PATIENT
  Sex: Female

DRUGS (6)
  1. PROVERA [Suspect]
     Indication: HORMONE REPLACEMENT THERAPY
     Route: 048
     Dates: start: 19930916, end: 19970630
  2. PREMARIN [Suspect]
     Indication: HORMONE REPLACEMENT THERAPY
     Dates: start: 19930916, end: 19970630
  3. PREMPRO [Suspect]
     Indication: HORMONE REPLACEMENT THERAPY
     Dates: start: 19970630, end: 20000717
  4. ADALAT [Concomitant]
     Indication: HYPERTENSION
     Dosage: UNK
     Dates: start: 19860101
  5. LOTENSIN [Concomitant]
     Indication: HYPERTENSION
     Dosage: UNK
     Dates: start: 19860101
  6. PROPRANOLOL [Concomitant]
     Indication: HYPERTENSION
     Dosage: UNK
     Dates: start: 19860101

REACTIONS (1)
  - BREAST CANCER FEMALE [None]
